FAERS Safety Report 6735659-7 (Version None)
Quarter: 2010Q2

REPORT INFORMATION
  Report Type: 
  Country: None (occurrence: None)
  Receive Date: 20100521
  Receipt Date: 20100512
  Transmission Date: 20101027
  Serious: Yes (Other)
  Sender: FDA-Public Use
  Company Number: PHHY2010CA30858

PATIENT
  Age: 86 Year
  Sex: Female

DRUGS (1)
  1. EXELON [Suspect]
     Dosage: PATCH 5, UNK
     Route: 062

REACTIONS (1)
  - INCORRECT DOSE ADMINISTERED [None]
